FAERS Safety Report 12047252 (Version 10)
Quarter: 2017Q1

REPORT INFORMATION
  Report Type: Report from Study
  Country: US (occurrence: US)
  Receive Date: 20160209
  Receipt Date: 20170110
  Transmission Date: 20170428
  Serious: Yes (Other)
  Sender: FDA-Public Use
  Company Number: US-ASTRAZENECA-2015SE78238

PATIENT
  Age: 26660 Day
  Sex: Female
  Weight: 55.2 kg

DRUGS (15)
  1. ADVAIR HFA [Concomitant]
     Active Substance: FLUTICASONE PROPIONATE\SALMETEROL XINAFOATE
  2. SYNTHROID [Concomitant]
     Active Substance: LEVOTHYROXINE SODIUM
  3. WARFARIN [Concomitant]
     Active Substance: WARFARIN
  4. IRESSA [Suspect]
     Active Substance: GEFITINIB
     Indication: METASTASES TO LUNG
     Route: 048
  5. AMLODIPINE [Concomitant]
     Active Substance: AMLODIPINE BESYLATE
  6. DIGOXIN. [Concomitant]
     Active Substance: DIGOXIN
  7. PROAIR HFA [Concomitant]
     Active Substance: ALBUTEROL SULFATE
  8. DEXILANT [Concomitant]
     Active Substance: DEXLANSOPRAZOLE
  9. ALUPENT [Concomitant]
     Active Substance: METAPROTERENOL SULFATE
  10. TAGRISSO [Suspect]
     Active Substance: OSIMERTINIB
     Indication: LUNG CARCINOMA CELL TYPE UNSPECIFIED STAGE 0
     Route: 048
     Dates: start: 20160205
  11. TOPROL XL [Concomitant]
     Active Substance: METOPROLOL SUCCINATE
  12. SIMVASTATIN. [Concomitant]
     Active Substance: SIMVASTATIN
  13. JUBLIA [Concomitant]
     Active Substance: EFINACONAZOLE
  14. REQUIP [Concomitant]
     Active Substance: ROPINIROLE HYDROCHLORIDE
  15. FLONASE [Concomitant]
     Active Substance: FLUTICASONE PROPIONATE

REACTIONS (14)
  - Fatigue [Not Recovered/Not Resolved]
  - Onychoclasis [Unknown]
  - Skin exfoliation [Recovering/Resolving]
  - Malignant neoplasm progression [Unknown]
  - Pruritus [Unknown]
  - Nausea [Recovered/Resolved]
  - Nasopharyngitis [Unknown]
  - Diarrhoea [Unknown]
  - Fungal infection [Unknown]
  - Drug dose omission [Unknown]
  - Dyspnoea [Unknown]
  - Decreased appetite [Not Recovered/Not Resolved]
  - Muscle spasms [Unknown]
  - Skin burning sensation [Recovering/Resolving]

NARRATIVE: CASE EVENT DATE: 20160228
